FAERS Safety Report 24589503 (Version 1)
Quarter: 2024Q4

REPORT INFORMATION
  Report Type: Spontaneous
  Country: CN (occurrence: CN)
  Receive Date: 20241107
  Receipt Date: 20241107
  Transmission Date: 20250115
  Serious: Yes (Other)
  Sender: BAXTER
  Company Number: None

PATIENT
  Age: 58 Year
  Sex: Male
  Weight: 52 kg

DRUGS (13)
  1. CYCLOPHOSPHAMIDE [Suspect]
     Active Substance: CYCLOPHOSPHAMIDE
     Indication: Nephrotic syndrome
     Dosage: 0.9 G, EVERY OTHER DAY, DILUTED WITH 50 ML OF 0.9% SODIUM CHLORIDE
     Route: 041
     Dates: start: 20240719
  2. CYCLOPHOSPHAMIDE [Suspect]
     Active Substance: CYCLOPHOSPHAMIDE
     Dosage: 0.2 G, EVERY OTHER DAY
     Route: 041
     Dates: start: 20240826, end: 20240901
  3. SODIUM CHLORIDE [Suspect]
     Active Substance: SODIUM CHLORIDE
     Indication: Medication dilution
     Dosage: 50 ML (0.9%), EVERY OTHER DAY, USED TO DILUTE CYCLOPHOSPHAMIDE 0.9 G
     Route: 041
     Dates: start: 20240719
  4. SODIUM CHLORIDE [Suspect]
     Active Substance: SODIUM CHLORIDE
     Dosage: 50 ML (0.9%), THREE TIMES IN ONE DAY, USED TO DILUTE AMOXICILLIN SODIUM AND CLAVULANATE POTASSIUM 1.
     Route: 041
     Dates: start: 20241008, end: 20241016
  5. METHYLPREDNISOLONE [Suspect]
     Active Substance: METHYLPREDNISOLONE
     Indication: Nephrotic syndrome
     Dosage: 40 MG (TABLETS)
     Route: 065
     Dates: start: 20240709
  6. METHYLPREDNISOLONE [Suspect]
     Active Substance: METHYLPREDNISOLONE
     Dosage: 7 TABLETS, ONE TIME IN ONE DAY
     Route: 048
     Dates: start: 20241008, end: 20241015
  7. METHYLPREDNISOLONE [Suspect]
     Active Substance: METHYLPREDNISOLONE
     Dosage: 6 TABLETS, ONE TIME IN ONE DAY
     Route: 048
     Dates: start: 20241016, end: 20241016
  8. LOSARTAN POTASSIUM [Concomitant]
     Active Substance: LOSARTAN POTASSIUM
     Indication: Hypertension
     Dosage: 0.1 G, ONE TIME IN ONE DAY (TABLETS)
     Route: 048
     Dates: start: 20241008, end: 20241016
  9. AMOXICILLIN\CLAVULANATE POTASSIUM [Concomitant]
     Active Substance: AMOXICILLIN\CLAVULANATE POTASSIUM
     Indication: Infection
     Dosage: 1.2 G, THREE TIMES IN ONE DAY, DILUTED WITH 100 ML OF 0.9% SODIUM CHLORIDE (POWDER FOR INJECTION)
     Route: 041
     Dates: start: 20241008, end: 20241016
  10. CALCIUM CARBONATE\CHOLECALCIFEROL [Concomitant]
     Active Substance: CALCIUM CARBONATE\CHOLECALCIFEROL
     Indication: Prophylaxis
     Dosage: 1 BAG, ONE TIME IN ONE DAY (GRANULES)
     Route: 048
     Dates: start: 20241008, end: 20241016
  11. CALCIUM CARBONATE\CHOLECALCIFEROL [Concomitant]
     Active Substance: CALCIUM CARBONATE\CHOLECALCIFEROL
     Indication: Osteoporosis
  12. LEVAMLODIPINE BESYLATE [Concomitant]
     Active Substance: LEVAMLODIPINE BESYLATE
     Indication: Hypertension
     Dosage: 5 MG, ONE TIME IN ONE DAY (TABLET)
     Route: 048
     Dates: start: 20241008, end: 20241016
  13. ATORVASTATIN CALCIUM [Concomitant]
     Active Substance: ATORVASTATIN CALCIUM
     Indication: Lipids abnormal
     Dosage: 20 MG, ONE TIME IN ONE DAY (TABLET)
     Route: 048
     Dates: start: 20241008, end: 20241016

REACTIONS (1)
  - Pneumonia [Recovering/Resolving]

NARRATIVE: CASE EVENT DATE: 20241008
